FAERS Safety Report 15127293 (Version 1)
Quarter: 2018Q3

REPORT INFORMATION
  Report Type: Spontaneous
  Country: US (occurrence: US)
  Receive Date: 20180710
  Receipt Date: 20180710
  Transmission Date: 20181010
  Serious: Yes (Hospitalization, Other)
  Sender: FDA-Public Use
  Company Number: US-ASTRAZENECA-2018SE74523

PATIENT
  Age: 54 Year
  Sex: Female
  Weight: 58.1 kg

DRUGS (10)
  1. FASLODEX [Suspect]
     Active Substance: FULVESTRANT
     Indication: BREAST CANCER FEMALE
     Route: 030
     Dates: start: 201708, end: 20180531
  2. METOPROLOL. [Suspect]
     Active Substance: METOPROLOL
     Indication: HEART RATE IRREGULAR
     Route: 048
  3. AMBIEN [Concomitant]
     Active Substance: ZOLPIDEM TARTRATE
     Indication: INSOMNIA
     Route: 048
  4. TAMOXIFEN [Suspect]
     Active Substance: TAMOXIFEN
     Indication: BREAST CANCER FEMALE
     Dosage: DAILY
     Route: 048
     Dates: start: 200001, end: 2002
  5. VITAMIN B [Concomitant]
     Active Substance: VITAMIN B
     Route: 048
  6. BIOTIN [Concomitant]
     Active Substance: BIOTIN
     Route: 048
  7. ZOMETA [Concomitant]
     Active Substance: ZOLEDRONIC ACID
     Indication: BONE DISORDER
  8. FASLODEX [Suspect]
     Active Substance: FULVESTRANT
     Indication: BREAST CANCER RECURRENT
     Route: 030
     Dates: start: 201708, end: 20180531
  9. LISINOPRIL. [Suspect]
     Active Substance: LISINOPRIL
     Route: 048
  10. FEMARA [Concomitant]
     Active Substance: LETROZOLE
     Indication: OESTROGEN RECEPTOR POSITIVE BREAST CANCER
     Route: 048

REACTIONS (21)
  - Spinal column injury [Unknown]
  - Weight increased [Unknown]
  - Temporomandibular joint syndrome [Unknown]
  - Osteopenia [Unknown]
  - Thrombosis [Recovered/Resolved]
  - Hallucination [Unknown]
  - Blood bilirubin increased [Unknown]
  - Alcohol withdrawal syndrome [Unknown]
  - Fall [Unknown]
  - Head injury [Unknown]
  - Coccydynia [Not Recovered/Not Resolved]
  - Headache [Recovered/Resolved with Sequelae]
  - Breast cancer recurrent [Unknown]
  - Metastases to spine [Not Recovered/Not Resolved]
  - Anaesthetic complication [Unknown]
  - Injection site pain [Unknown]
  - Hot flush [Not Recovered/Not Resolved]
  - Pain [Unknown]
  - Pain in extremity [Recovered/Resolved with Sequelae]
  - Vaginal odour [Unknown]
  - Arthritis [Unknown]

NARRATIVE: CASE EVENT DATE: 2000
